FAERS Safety Report 16802058 (Version 1)
Quarter: 2019Q3

REPORT INFORMATION
  Report Type: Spontaneous
  Country: US (occurrence: US)
  Receive Date: 20190912
  Receipt Date: 20190912
  Transmission Date: 20191005
  Serious: Yes (Other)
  Sender: FDA-Public Use
  Company Number: US-ARBOR PHARMACEUTICALS, LLC-US-2019ARB001345

PATIENT
  Age: 32 Year
  Sex: Male

DRUGS (6)
  1. WARFARIN [Suspect]
     Active Substance: WARFARIN
     Dosage: 10 MG, QD
  2. ERYTHROMYCIN. [Suspect]
     Active Substance: ERYTHROMYCIN
     Dosage: 250 MG, QD
  3. WARFARIN [Suspect]
     Active Substance: WARFARIN
     Indication: DEEP VEIN THROMBOSIS
     Dosage: DOSE BETWEEN 10-12.5 MG PER DAY
  4. WARFARIN [Suspect]
     Active Substance: WARFARIN
     Dosage: DOSE BETWEEN 10-12.5 MG PER DAY, FOR SIX MONTHS
  5. ERYTHROMYCIN. [Suspect]
     Active Substance: ERYTHROMYCIN
     Dosage: 250 MG, BID
  6. ERYTHROMYCIN. [Suspect]
     Active Substance: ERYTHROMYCIN
     Indication: ANTIBIOTIC PROPHYLAXIS
     Dosage: 250 MG, QID

REACTIONS (3)
  - Haemorrhage [Unknown]
  - Potentiating drug interaction [Unknown]
  - Prothrombin time prolonged [Recovered/Resolved]
